FAERS Safety Report 5599888-0 (Version None)
Quarter: 2008Q1

REPORT INFORMATION
  Report Type: 
  Country: None (occurrence: None)
  Receive Date: 20080123
  Receipt Date: 20080110
  Transmission Date: 20080703
  Serious: Yes (Hospitalization, Other)
  Sender: FDA-Public Use
  Company Number: ES-BRISTOL-MYERS SQUIBB COMPANY-14031421

PATIENT
  Age: 77 Year
  Sex: Male

DRUGS (6)
  1. METFORMIN HCL [Suspect]
     Indication: DIABETES MELLITUS
     Route: 048
  2. PARACETAMOL [Suspect]
  3. GLICLAZIDE [Suspect]
  4. TAMSULOSIN HCL [Suspect]
  5. NEBIVOLOL HCL [Suspect]
  6. METAMIZOLE MAGNESIUM [Suspect]

REACTIONS (5)
  - DIARRHOEA [None]
  - DRUG TOXICITY [None]
  - LACTIC ACIDOSIS [None]
  - PROSTATE CANCER METASTATIC [None]
  - SPINAL CORD COMPRESSION [None]
